FAERS Safety Report 6447824-7 (Version None)
Quarter: 2009Q4

REPORT INFORMATION
  Report Type: 
  Country: None (occurrence: None)
  Receive Date: 20091120
  Receipt Date: 20091006
  Transmission Date: 20100525
  Serious: No
  Sender: FDA-Public Use
  Company Number: A0808069A

PATIENT
  Age: 40 Year
  Sex: Female
  Weight: 77.3 kg

DRUGS (2)
  1. VERAMYST [Suspect]
     Route: 045
     Dates: start: 20090908, end: 20090909
  2. VENTOLIN [Concomitant]
     Indication: ASTHMA
     Dosage: 2PUFF UNKNOWN

REACTIONS (1)
  - CHEST PAIN [None]
